FAERS Safety Report 4655010-6 (Version None)
Quarter: 2005Q2

REPORT INFORMATION
  Report Type: 
  Country: None (occurrence: None)
  Receive Date: 20050506
  Receipt Date: 20030324
  Transmission Date: 20051028
  Serious: Yes (Death, Life-Threatening)
  Sender: FDA-Public Use
  Company Number: US-BRISTOL-MYERS SQUIBB COMPANY-12201604

PATIENT
  Age: 58 Year
  Sex: Male
  Weight: 75 kg

DRUGS (4)
  1. CISPLATIN [Suspect]
     Indication: NEOPLASM MALIGNANT
     Dates: start: 20010413, end: 20010601
  2. CETUXIMAB [Suspect]
     Indication: NEOPLASM MALIGNANT
     Route: 042
     Dates: start: 20010413
  3. CARBOPLATIN [Suspect]
     Indication: NEOPLASM MALIGNANT
     Dosage: STARTED AT CYCLE 4 AT AUC 4
     Dates: start: 20010622
  4. COUMADIN [Concomitant]

REACTIONS (2)
  - DEATH [None]
  - DEEP VEIN THROMBOSIS [None]
